FAERS Safety Report 11653870 (Version 3)
Quarter: 2015Q4

REPORT INFORMATION
  Report Type: Spontaneous
  Country: US (occurrence: US)
  Receive Date: 20151022
  Receipt Date: 20151027
  Transmission Date: 20160304
  Serious: No
  Sender: FDA-Public Use
  Company Number: GXBR2014US002384

PATIENT
  Sex: Female
  Weight: 70.3 kg

DRUGS (4)
  1. SYNTHROID [Concomitant]
     Active Substance: LEVOTHYROXINE SODIUM
     Indication: PRODUCT USED FOR UNKNOWN INDICATION
     Dosage: 125 UG, UNK
     Route: 048
  2. POLYETHYLENE GLYCOL [Concomitant]
     Active Substance: POLYETHYLENE GLYCOLS
     Indication: CONSTIPATION PROPHYLAXIS
     Dosage: 3 TSP, QD
     Route: 048
  3. ESTRADIOL DIPROPIONATE. [Concomitant]
     Active Substance: ESTRADIOL DIPROPIONATE
     Indication: PRODUCT USED FOR UNKNOWN INDICATION
     Dosage: UNK DF, UNK
     Route: 048
  4. SOLARAZE [Suspect]
     Active Substance: DICLOFENAC SODIUM
     Indication: ACTINIC KERATOSIS
     Dosage: 1 DF, UNK
     Route: 061
     Dates: start: 20141027, end: 20141104

REACTIONS (3)
  - Rash [Recovered/Resolved]
  - Skin discolouration [Recovering/Resolving]
  - Tinnitus [Recovering/Resolving]
